FAERS Safety Report 25776748 (Version 1)
Quarter: 2025Q3

REPORT INFORMATION
  Report Type: Spontaneous
  Country: US (occurrence: US)
  Receive Date: 20250909
  Receipt Date: 20250909
  Transmission Date: 20251020
  Serious: No
  Sender: DOMPE FARMACEUTICI
  Company Number: US-FARMAPROD-202503-0906

PATIENT
  Age: 72 Year
  Sex: Male

DRUGS (21)
  1. OXERVATE [Suspect]
     Active Substance: CENEGERMIN-BKBJ
     Indication: Neurotrophic keratopathy
     Route: 047
     Dates: start: 20250313
  2. ASPIRIN [Concomitant]
     Active Substance: ASPIRIN
  3. VITAMIN C [Concomitant]
     Active Substance: ASCORBIC ACID
  4. TRAMADOL HCL [Concomitant]
     Active Substance: TRAMADOL HYDROCHLORIDE
  5. HYDROCHLOROTHIAZIDE\VALSARTAN [Concomitant]
     Active Substance: HYDROCHLOROTHIAZIDE\VALSARTAN
  6. ROSUVASTATIN CALCIUM [Concomitant]
     Active Substance: ROSUVASTATIN CALCIUM
  7. NITROGLYCERIN [Concomitant]
     Active Substance: NITROGLYCERIN
  8. METOPROLOL TARTRATE [Concomitant]
     Active Substance: METOPROLOL TARTRATE
  9. LORAZEPAM [Concomitant]
     Active Substance: LORAZEPAM
  10. JARDIANCE [Concomitant]
     Active Substance: EMPAGLIFLOZIN
  11. ISOSORBIDE DINITRATE [Concomitant]
     Active Substance: ISOSORBIDE DINITRATE
  12. TRESIBA [Concomitant]
     Active Substance: INSULIN DEGLUDEC
  13. GABAPENTIN [Concomitant]
     Active Substance: GABAPENTIN
  14. FENOFIBRATE [Concomitant]
     Active Substance: FENOFIBRATE
  15. BETAMETHASONE CLOTRIMAZOLE [Concomitant]
     Active Substance: BETAMETHASONE DIPROPIONATE\CLOTRIMAZOLE
  16. COSOPT [Concomitant]
     Active Substance: DORZOLAMIDE HYDROCHLORIDE\TIMOLOL MALEATE
  17. LATANOPROST [Concomitant]
     Active Substance: LATANOPROST
  18. BRIMONIDINE TARTRATE [Concomitant]
     Active Substance: BRIMONIDINE TARTRATE
  19. MOXIFLOXACIN [Concomitant]
     Active Substance: MOXIFLOXACIN
  20. PRED FORTE [Concomitant]
     Active Substance: PREDNISOLONE ACETATE
  21. VALTREX [Concomitant]
     Active Substance: VALACYCLOVIR HYDROCHLORIDE

REACTIONS (4)
  - Eye pain [Unknown]
  - Eye inflammation [Unknown]
  - Ocular hyperaemia [Unknown]
  - Eye swelling [Unknown]

NARRATIVE: CASE EVENT DATE: 20250316
